FAERS Safety Report 18505133 (Version 3)
Quarter: 2021Q1

REPORT INFORMATION
  Report Type: Spontaneous
  Country: TH (occurrence: TH)
  Receive Date: 20201116
  Receipt Date: 20210122
  Transmission Date: 20210419
  Serious: Yes (Death, Other)
  Sender: FDA-Public Use
  Company Number: TH-CELLTRION INC.-2020TH031528

PATIENT

DRUGS (4)
  1. PREDNISOLONE. [Suspect]
     Active Substance: PREDNISOLONE
     Indication: SYSTEMIC LUPUS ERYTHEMATOSUS
     Dosage: 60 MG PER DAY
  2. TRUXIMA [Suspect]
     Active Substance: RITUXIMAB-ABBS
     Dosage: 500 MILLIGRAM  (3RD INFUSION)
  3. TRUXIMA [Suspect]
     Active Substance: RITUXIMAB-ABBS
     Dosage: 500 MILLIGRAM  (2ND INFUSION)
  4. TRUXIMA [Suspect]
     Active Substance: RITUXIMAB-ABBS
     Indication: LUPUS NEPHRITIS
     Dosage: 500 MILLIGRAM  (1ST INFUSION)

REACTIONS (13)
  - Pneumonitis [Unknown]
  - Therapy non-responder [Unknown]
  - Cytomegalovirus infection [Unknown]
  - Off label use [Unknown]
  - Acute respiratory distress syndrome [Fatal]
  - Candida sepsis [Unknown]
  - Stenotrophomonas infection [Fatal]
  - Pneumonia [Fatal]
  - Escherichia infection [Unknown]
  - Septic shock [Unknown]
  - Device related sepsis [Unknown]
  - Bronchopulmonary aspergillosis [Unknown]
  - Urinary tract infection [Unknown]
